FAERS Safety Report 5757634-1 (Version None)
Quarter: 2008Q2

REPORT INFORMATION
  Report Type: 
  Country: None (occurrence: None)
  Receive Date: 20080603
  Receipt Date: 20080523
  Transmission Date: 20081010
  Serious: Yes (Hospitalization, Other)
  Sender: FDA-Public Use
  Company Number: US-PFIZER INC-2008044553

PATIENT
  Sex: Female
  Weight: 72 kg

DRUGS (12)
  1. SERTRALINE [Suspect]
     Indication: DEPRESSION
  2. LISINOPRIL [Concomitant]
  3. SYNTHROID [Concomitant]
  4. NIFEDIPINE [Concomitant]
  5. METOPROLOL TARTRATE [Concomitant]
  6. XALATAN [Concomitant]
  7. MECLIZINE [Concomitant]
  8. TYLENOL W/ CODEINE NO. 3 [Concomitant]
  9. TORSEMIDE [Concomitant]
  10. ASPIRIN [Concomitant]
  11. DOCUSATE SODIUM [Concomitant]
  12. VITAMIN CAP [Concomitant]

REACTIONS (7)
  - APPARENT DEATH [None]
  - CARDIAC FAILURE CONGESTIVE [None]
  - HALLUCINATION [None]
  - OXYGEN SATURATION DECREASED [None]
  - PARANOIA [None]
  - PNEUMONIA [None]
  - UNRESPONSIVE TO STIMULI [None]
